FAERS Safety Report 20690294 (Version 1)
Quarter: 2022Q2

REPORT INFORMATION
  Report Type: Report from Study
  Country: CY (occurrence: CY)
  Receive Date: 20220408
  Receipt Date: 20220408
  Transmission Date: 20220721
  Serious: Yes (Other)
  Sender: FDA-Public Use
  Company Number: CY-ROCHE-2863492

PATIENT
  Age: 41 Year
  Sex: Female
  Weight: 51 kg

DRUGS (28)
  1. GEMCITABINE [Suspect]
     Active Substance: GEMCITABINE
     Indication: HER2 positive breast cancer
     Dosage: OTHER,MOST RECENT DOSE: 16/NOV/2018, 1000MG//M2
     Route: 042
     Dates: start: 20181003
  2. CAPECITABINE [Suspect]
     Active Substance: CAPECITABINE
     Indication: HER2 positive breast cancer
     Dosage: MOST RECENT DOSE: 28/MAR/2017,FREQUENCY TIME 0.5DAYS, 1650MG
     Route: 048
     Dates: start: 20161109
  3. DOCETAXEL [Suspect]
     Active Substance: DOCETAXEL
     Indication: HER2 positive breast cancer
     Dosage: MOST RECENT DOSE: 14/AUG/2019, 80MG/M2, FREQUENCY TIME 3WEEKS
     Route: 042
     Dates: start: 20190523
  4. DOXORUBICIN [Suspect]
     Active Substance: DOXORUBICIN
     Indication: HER2 positive breast cancer
     Dosage: ON 28/MAR/2019, INTRAVENOUS DOXORUBICIN DOXORUBICIN 40 MG EVERY 4 WEEK. 40MG, FREQUENCY TIME 4WEEKS,
     Route: 042
     Dates: start: 20190328, end: 20190402
  5. EPIRUBICIN [Suspect]
     Active Substance: EPIRUBICIN
     Indication: HER2 positive breast cancer
     Dosage: MOST RECENT DOSE: 15/NOV/2019, 80MG/M2, FREQUENCY TIME 3WEEKS
     Route: 042
     Dates: start: 20190930
  6. LAPATINIB [Suspect]
     Active Substance: LAPATINIB
     Indication: HER2 positive breast cancer
     Dosage: MOST RECENT DOSE: 08/MAR/2019, 75MG, FREQUENCY TIME 1DAYS
     Route: 048
     Dates: start: 20180212
  7. CYCLOPHOSPHAMIDE [Suspect]
     Active Substance: CYCLOPHOSPHAMIDE
     Indication: HER2 positive breast cancer
     Dosage: MOST RECENT DOSE: 16/DEC/2019, 500MG/M2, FREQUENCY TIME 3WEEKS
     Route: 042
     Dates: start: 20190930
  8. ADO-TRASTUZUMAB EMTANSINE [Suspect]
     Active Substance: ADO-TRASTUZUMAB EMTANSINE
     Indication: HER2 positive breast cancer
     Dosage: MOST RECENT DOSE:16/APR/2018,FREQUENCY TIME 3WEEKS, 3.6MG/KG,
     Route: 042
     Dates: start: 20170403
  9. METHOTREXATE [Suspect]
     Active Substance: METHOTREXATE
     Indication: HER2 positive breast cancer
     Dosage: OTHER,MOST RECENT DOSE:18/MAY/2020, 40MG/M2
     Route: 042
     Dates: start: 20191216
  10. CARBOPLATIN [Suspect]
     Active Substance: CARBOPLATIN
     Indication: HER2 positive breast cancer
     Dosage: MOST RECENT DOSE: 16/NOV/2018, 560MG, FREQUENCY TIME 3WEEKS
     Route: 042
     Dates: start: 20181003
  11. TRASTUZUMAB [Suspect]
     Active Substance: TRASTUZUMAB
     Indication: HER2 positive breast cancer
     Dosage: MOST RECENT DOSE: 16/MAR/2020,INFUSION, SOLUTION, 330MG, FREQUENCY TIME 3WEEKS
     Route: 042
     Dates: start: 20161104
  12. FLUOROURACIL [Suspect]
     Active Substance: FLUOROURACIL
     Indication: HER2 positive breast cancer
     Dosage: OTHER,MOST RECENT DOSE: 28/MAY/2020,600MG/M2
     Route: 042
     Dates: start: 20191216
  13. VINORELBINE [Suspect]
     Active Substance: VINORELBINE TARTRATE
     Indication: HER2 positive breast cancer
     Dosage: FREQUENCY: OTHER,MOST RECENT DOSE: 17/SEP/2018, 25MG/M2
     Route: 042
     Dates: start: 20180511
  14. VALPROATE SODIUM [Concomitant]
     Active Substance: VALPROATE SODIUM
     Indication: Muscle spasticity
     Dosage: ONGOING = CHECKED
     Dates: start: 20191223
  15. ZOLEDRONIC ACID [Concomitant]
     Active Substance: ZOLEDRONIC ACID
     Dosage: ONGOING = NOT CHECKED,DURATION 4YEARS
     Dates: start: 20161109, end: 20200625
  16. ACETAMINOPHEN [Concomitant]
     Active Substance: ACETAMINOPHEN
     Indication: Headache
     Dates: start: 20161109
  17. ACETAMINOPHEN [Concomitant]
     Active Substance: ACETAMINOPHEN
     Dates: start: 20180525
  18. OMEPRAZOLE [Concomitant]
     Active Substance: OMEPRAZOLE
     Dates: start: 20180511
  19. LAMICTAL [Concomitant]
     Active Substance: LAMOTRIGINE
     Indication: Muscle spasticity
     Dosage: ONGOING = CHECKED
     Dates: start: 20200309
  20. MAGNESIUM [Concomitant]
     Active Substance: MAGNESIUM
     Dates: start: 20180706
  21. CALCIUM [Concomitant]
     Active Substance: CALCIUM
     Dates: start: 20170306
  22. CANNABIS SATIVA SUBSP. INDICA TOP [Concomitant]
     Active Substance: CANNABIS SATIVA SUBSP. INDICA TOP
     Dosage: ONGOING = CHECKED
     Dates: start: 20190606
  23. EMEND [Concomitant]
     Active Substance: APREPITANT
     Dosage: ONGOING = CHECKED
     Dates: start: 20190930
  24. SULFAMETHOXAZOLE\TRIMETHOPRIM [Concomitant]
     Active Substance: SULFAMETHOXAZOLE\TRIMETHOPRIM
     Dosage: ONGOING = CHECKED
     Dates: start: 20190612
  25. LEUCOVORIN [Concomitant]
     Active Substance: LEUCOVORIN
     Dosage: ONGOING = NOT CHECKED,DURATION 130DAYS
     Dates: start: 20191214, end: 20200421
  26. KEPPRA [Concomitant]
     Active Substance: LEVETIRACETAM
     Dosage: ONGOING = CHECKED
     Dates: start: 20200211
  27. IBUPROFEN [Concomitant]
     Active Substance: IBUPROFEN
     Indication: Headache
     Dates: start: 20190112
  28. DEXAMETHASONE [Concomitant]
     Active Substance: DEXAMETHASONE
     Dates: start: 20190422

REACTIONS (1)
  - Deep vein thrombosis [Not Recovered/Not Resolved]

NARRATIVE: CASE EVENT DATE: 20200514
